FAERS Safety Report 13067108 (Version 2)
Quarter: 2016Q4

REPORT INFORMATION
  Report Type: Spontaneous
  Country: TR (occurrence: TR)
  Receive Date: 20161227
  Receipt Date: 20161228
  Transmission Date: 20170207
  Serious: Yes (Death)
  Sender: FDA-Public Use
  Company Number: TR-ABBVIE-16P-161-1819614-00

PATIENT
  Age: 29 Week
  Weight: 1.05 kg

DRUGS (1)
  1. SURVANTA [Suspect]
     Active Substance: BERACTANT
     Indication: ACUTE RESPIRATORY DISTRESS SYNDROME
     Dosage: 1 DOSAGE
     Route: 065
     Dates: start: 201608, end: 201608

REACTIONS (1)
  - Pulmonary haemorrhage [Fatal]

NARRATIVE: CASE EVENT DATE: 201608
